FAERS Safety Report 10471846 (Version 3)
Quarter: 2015Q2

REPORT INFORMATION
  Report Type: Report from Study
  Country: CN (occurrence: CN)
  Receive Date: 20140924
  Receipt Date: 20150626
  Transmission Date: 20150821
  Serious: Yes (Hospitalization, Other)
  Sender: FDA-Public Use
  Company Number: CN-UCBSA-120328

PATIENT
  Age: 18 Year
  Sex: Female
  Weight: 68 kg

DRUGS (2)
  1. *CARBAMAZEPINE [Suspect]
     Active Substance: CARBAMAZEPINE
     Dosage: 200 MG, ONCE DAILY (QD)
     Route: 048
     Dates: start: 20140210, end: 20140324
  2. *CARBAMAZEPINE [Suspect]
     Active Substance: CARBAMAZEPINE
     Indication: EPILEPSY
     Dosage: 400 MG, ONCE DAILY (QD)
     Route: 048
     Dates: start: 20140325, end: 20140505

REACTIONS (3)
  - Abortion late [Recovered/Resolved]
  - Epilepsy [Unknown]
  - Pregnancy [Unknown]

NARRATIVE: CASE EVENT DATE: 20140320
